FAERS Safety Report 8243214-5 (Version None)
Quarter: 2012Q1

REPORT INFORMATION
  Report Type: 
  Country: None (occurrence: None)
  Receive Date: 20120329
  Receipt Date: 20120320
  Transmission Date: 20120608
  Serious: Yes (Other)
  Sender: FDA-Public Use
  Company Number: US-JNJFOC-20120311803

PATIENT
  Sex: Male

DRUGS (6)
  1. PREZISTA [Suspect]
     Indication: HIV INFECTION
     Route: 048
  2. ETRAVIRINE [Suspect]
     Indication: HIV INFECTION
     Route: 048
  3. ATAZANAVIR [Interacting]
     Indication: HIV INFECTION
     Route: 065
  4. ROSUVASTATIN [Suspect]
     Indication: LIPIDS INCREASED
     Route: 065
  5. RALTEGRAVIR [Suspect]
     Indication: HIV INFECTION
     Route: 065
  6. RITONAVIR [Concomitant]
     Indication: HIV INFECTION
     Route: 065

REACTIONS (3)
  - DRUG INTERACTION [None]
  - BLOOD CREATINE PHOSPHOKINASE INCREASED [None]
  - LIPIDS INCREASED [None]
